FAERS Safety Report 24347920 (Version 2)
Quarter: 2024Q3

REPORT INFORMATION
  Report Type: Report from Study
  Country: US (occurrence: US)
  Receive Date: 20240923
  Receipt Date: 20240925
  Transmission Date: 20241017
  Serious: Yes (Other)
  Sender: ABBVIE
  Company Number: US-ABBVIE-5930140

PATIENT
  Sex: Male
  Weight: 72.574 kg

DRUGS (2)
  1. RINVOQ [Suspect]
     Active Substance: UPADACITINIB
     Indication: Crohn^s disease
     Dosage: FORM STRENGTH: 45 MILLIGRAM
     Route: 048
     Dates: start: 20240409, end: 20240729
  2. ADDERALL [Concomitant]
     Active Substance: AMPHETAMINE ASPARTATE\AMPHETAMINE SULFATE\DEXTROAMPHETAMINE SACCHARATE\DEXTROAMPHETAMINE SULFATE
     Indication: Attention deficit hyperactivity disorder

REACTIONS (9)
  - Intestinal obstruction [Recovering/Resolving]
  - Acne [Recovered/Resolved]
  - Rash [Recovered/Resolved]
  - Drug intolerance [Recovered/Resolved]
  - Hordeolum [Recovered/Resolved]
  - Chalazion [Recovered/Resolved]
  - Infection [Unknown]
  - Hordeolum [Recovered/Resolved]
  - Chalazion [Recovered/Resolved]

NARRATIVE: CASE EVENT DATE: 20240101
